FAERS Safety Report 24460302 (Version 1)
Quarter: 2024Q4

REPORT INFORMATION
  Report Type: Spontaneous
  Country: CN (occurrence: CN)
  Receive Date: 20241018
  Receipt Date: 20241018
  Transmission Date: 20250114
  Serious: No
  Sender: ROCHE
  Company Number: CN-ROCHE-3535829

PATIENT
  Age: 28 Year
  Sex: Female

DRUGS (13)
  1. MABTHERA [Suspect]
     Active Substance: RITUXIMAB
     Indication: Encephalitis autoimmune
     Route: 065
     Dates: start: 20230906
  2. MABTHERA [Suspect]
     Active Substance: RITUXIMAB
     Route: 065
     Dates: start: 20231001
  3. HUMAN IMMUNOGLOBULIN G [Concomitant]
     Active Substance: HUMAN IMMUNOGLOBULIN G
     Dosage: 22-AUG-2023 TO 26-AUG-2023
     Dates: start: 20230822
  4. OXCARBAZEPINE [Concomitant]
     Active Substance: OXCARBAZEPINE
     Indication: Epilepsy
     Dates: start: 20230906
  5. MIDAZOLAM [Concomitant]
     Active Substance: MIDAZOLAM
  6. METHYLPREDNISOLONE SODIUM SUCCINATE [Concomitant]
     Active Substance: METHYLPREDNISOLONE SODIUM SUCCINATE
     Indication: Encephalitis autoimmune
     Dosage: FOR 5 DAYS
     Dates: start: 20230829
  7. VALPROATE SODIUM [Concomitant]
     Active Substance: VALPROATE SODIUM
     Indication: Encephalitis autoimmune
     Dates: start: 20230906
  8. LACOSAMIDE [Concomitant]
     Active Substance: LACOSAMIDE
     Indication: Encephalitis autoimmune
     Dates: start: 20230906
  9. LEVETIRACETAM [Concomitant]
     Active Substance: LEVETIRACETAM
     Indication: Encephalitis autoimmune
     Dates: start: 20230906
  10. PIPERACILLIN AND TAZOBACTAM [Concomitant]
     Active Substance: PIPERACILLIN SODIUM\TAZOBACTAM SODIUM
     Indication: Anti-infective therapy
     Dates: start: 20230906
  11. PROPRANOLOL HYDROCHLORIDE [Concomitant]
     Active Substance: PROPRANOLOL HYDROCHLORIDE
     Indication: Autonomic nervous system imbalance
  12. EFGARTIGIMOD ALFA [Concomitant]
     Active Substance: EFGARTIGIMOD ALFA
     Indication: Encephalitis autoimmune
     Dosage: FIRST ADMINISTRATION
     Dates: start: 20230912
  13. EFGARTIGIMOD ALFA [Concomitant]
     Active Substance: EFGARTIGIMOD ALFA
     Dosage: SECOND ADMINISTRATION
     Dates: start: 20230919

REACTIONS (6)
  - Muscle twitching [Unknown]
  - Blood pressure increased [Unknown]
  - Heart rate increased [Unknown]
  - Tachypnoea [Unknown]
  - White blood cell count decreased [Unknown]
  - Off label use [Unknown]
